FAERS Safety Report 5918519-0 (Version None)
Quarter: 2008Q4

REPORT INFORMATION
  Report Type: 
  Country: None (occurrence: None)
  Receive Date: 20081014
  Receipt Date: 20081014
  Transmission Date: 20090506
  Serious: Yes (Other)
  Sender: FDA-Public Use
  Company Number: None

PATIENT
  Age: 28 Year
  Sex: Male
  Weight: 68.0396 kg

DRUGS (2)
  1. METOPROLOL SUCCINATE EXTENDED RELEASE [Suspect]
     Indication: HYPERTENSION
     Dosage: 25 MG 1 PER DAY PO
     Route: 048
     Dates: start: 20081011, end: 20081013
  2. METOPROLOL SUCCINATE EXTENDED RELEASE [Suspect]
     Indication: POSTOPERATIVE CARE
     Dosage: 25 MG 1 PER DAY PO
     Route: 048
     Dates: start: 20081011, end: 20081013

REACTIONS (3)
  - BLOOD PRESSURE INCREASED [None]
  - DRUG INEFFECTIVE [None]
  - HEART RATE ABNORMAL [None]
